APPROVED DRUG PRODUCT: ERYTHROMYCIN
Active Ingredient: ERYTHROMYCIN
Strength: 2%
Dosage Form/Route: SWAB;TOPICAL
Application: A065320 | Product #001
Applicant: FOUGERA PHARMACEUTICALS INC
Approved: Jul 25, 2006 | RLD: No | RS: No | Type: DISCN